FAERS Safety Report 18456571 (Version 1)
Quarter: 2020Q4

REPORT INFORMATION
  Report Type: Other
  Country: GB (occurrence: GB)
  Receive Date: 20201103
  Receipt Date: 20201103
  Transmission Date: 20210114
  Serious: Yes (Disabling)
  Sender: FDA-Public Use
  Company Number: GB-STRIDES ARCOLAB LIMITED-2020SP013196

PATIENT
  Age: 66 Year
  Sex: Female
  Weight: 57 kg

DRUGS (1)
  1. HYDROCORTISONE. [Suspect]
     Active Substance: HYDROCORTISONE
     Indication: DERMATITIS ALLERGIC
     Dosage: 2 DOSAGE FORM PER DAY (APPLY THINLY)
     Route: 061
     Dates: start: 20201007, end: 20201009

REACTIONS (3)
  - Exposure via eye contact [Unknown]
  - Visual impairment [Not Recovered/Not Resolved]
  - Injury corneal [Not Recovered/Not Resolved]

NARRATIVE: CASE EVENT DATE: 20201009
